FAERS Safety Report 9685614 (Version 1)
Quarter: 2013Q4

REPORT INFORMATION
  Report Type: Spontaneous
  Country: US (occurrence: US)
  Receive Date: 20131113
  Receipt Date: 20131113
  Transmission Date: 20140711
  Serious: Yes (Hospitalization)
  Sender: FDA-Public Use
  Company Number: US-GLAXOSMITHKLINE-A1008830A

PATIENT
  Age: 80 Year
  Sex: Female

DRUGS (2)
  1. CARVEDILOL [Suspect]
     Indication: CARDIAC FAILURE CONGESTIVE
     Dosage: 6.25MG UNKNOWN
     Route: 048
     Dates: end: 20130112
  2. UNSPECIFIED MEDICATION [Concomitant]

REACTIONS (1)
  - Heart rate decreased [Recovered/Resolved]
